FAERS Safety Report 17354303 (Version 1)
Quarter: 2020Q1

REPORT INFORMATION
  Report Type: Report from Study
  Country: MX (occurrence: MX)
  Receive Date: 20200131
  Receipt Date: 20200131
  Transmission Date: 20200409
  Serious: Yes (Death, Hospitalization, Other)
  Sender: FDA-Public Use
  Company Number: MX-TEVA-2020-MX-1177543

PATIENT
  Age: 37 Year
  Sex: Male

DRUGS (2)
  1. MORPHINE [Concomitant]
     Active Substance: MORPHINE
     Indication: DRUG WITHDRAWAL MAINTENANCE THERAPY
     Dosage: HIGH DOSE, (INTRAVENOUSLY, PUMP)
     Route: 042
  2. TORAFEN [FENTANYL] [Suspect]
     Active Substance: FENTANYL
     Indication: BREAKTHROUGH PAIN
     Route: 002
     Dates: start: 2019

REACTIONS (7)
  - Hospitalisation [Unknown]
  - Drug dependence [Unknown]
  - Intentional product use issue [Unknown]
  - Depression [Unknown]
  - Drug tolerance [Unknown]
  - Hallucination [Unknown]
  - Serotonin syndrome [Unknown]

NARRATIVE: CASE EVENT DATE: 2019
